FAERS Safety Report 19673339 (Version 1)
Quarter: 2021Q3

REPORT INFORMATION
  Report Type: Spontaneous
  Country: JP (occurrence: JP)
  Receive Date: 20210809
  Receipt Date: 20210809
  Transmission Date: 20211014
  Serious: Yes (Hospitalization)
  Sender: FDA-Public Use
  Company Number: JP-UCBSA-2021011036

PATIENT
  Age: 51 Year
  Sex: Male

DRUGS (1)
  1. CIMZIA [Suspect]
     Active Substance: CERTOLIZUMAB PEGOL
     Indication: PUSTULAR PSORIASIS
     Dosage: 400 MILLIGRAM
     Route: 058
     Dates: start: 20210301

REACTIONS (5)
  - Off label use [Unknown]
  - Abdominal pain [Recovered/Resolved]
  - Pyrexia [Recovered/Resolved]
  - Diarrhoea [Unknown]
  - Blepharitis [Unknown]

NARRATIVE: CASE EVENT DATE: 20210301
